FAERS Safety Report 8458257 (Version 6)
Quarter: 2014Q2

REPORT INFORMATION
  Report Type: Report from Study
  Country: CA (occurrence: CA)
  Receive Date: 20120314
  Receipt Date: 20140602
  Transmission Date: 20141212
  Serious: Yes (Hospitalization, Other)
  Sender: FDA-Public Use
  Company Number: PHHY2012CA020620

PATIENT
  Age: 65 Year
  Sex: Female

DRUGS (3)
  1. SANDOSTATIN LAR [Suspect]
     Indication: NEUROENDOCRINE TUMOUR
     Dosage: 30 MG, QMO (EVERY 4 WEEKS)
     Route: 030
     Dates: start: 20090315
  2. SANDOSTATIN LAR [Suspect]
     Indication: GASTRIC CANCER
     Dosage: 30 MG, EVERY 4 WEEKS
     Route: 030
     Dates: start: 20120501, end: 2013
  3. IRON [Concomitant]
     Dosage: UNK UKN, UNK

REACTIONS (9)
  - Hip fracture [Unknown]
  - Cellulitis [Unknown]
  - Thrombosis [Unknown]
  - Injection site haemorrhage [Unknown]
  - Injection site bruising [Recovered/Resolved]
  - Injection site mass [Unknown]
  - Tenderness [Unknown]
  - Administration site reaction [Unknown]
  - Blood count abnormal [Unknown]
